FAERS Safety Report 7222994-1 (Version None)
Quarter: 2011Q1

REPORT INFORMATION
  Report Type: 
  Country: None (occurrence: None)
  Receive Date: 20110112
  Receipt Date: 20101227
  Transmission Date: 20110831
  Serious: Yes (Death)
  Sender: FDA-Public Use
  Company Number: JP-PFIZER INC-2010145086

PATIENT
  Age: 76 Year
  Sex: Female
  Weight: 33 kg

DRUGS (10)
  1. ALDACTONE [Concomitant]
     Dosage: UNK
     Route: 048
     Dates: end: 20101107
  2. LASIX [Concomitant]
     Dosage: UNK
     Route: 048
     Dates: end: 20101107
  3. WARFARIN [Concomitant]
     Dosage: UNK
     Route: 048
     Dates: start: 20100625, end: 20101107
  4. TANADOPA [Concomitant]
     Dosage: UNK
     Route: 048
     Dates: end: 20101107
  5. SILDENAFIL CITRATE [Suspect]
     Indication: PORTOPULMONARY HYPERTENSION
  6. SILDENAFIL CITRATE [Suspect]
     Indication: PULMONARY ARTERIAL HYPERTENSION
     Dosage: 60 MG/DAY, 3X/DAY
     Route: 048
     Dates: start: 20101102, end: 20101106
  7. LANIRAPID [Concomitant]
     Dosage: UNK
     Route: 048
     Dates: start: 20101102, end: 20101107
  8. TORASEMIDE [Concomitant]
     Dosage: UNK
     Route: 048
     Dates: end: 20101107
  9. PARIET [Concomitant]
     Indication: PROPHYLAXIS AGAINST GASTROINTESTINAL ULCER
     Dosage: UNK
     Route: 048
     Dates: end: 20101107
  10. TRACLEER [Concomitant]
     Indication: PULMONARY ARTERIAL HYPERTENSION
     Dosage: 62.5 MG, 2X/DAY
     Route: 048
     Dates: start: 20100702, end: 20101107

REACTIONS (1)
  - GASTROINTESTINAL HAEMORRHAGE [None]
